FAERS Safety Report 23448099 (Version 1)
Quarter: 2024Q1

REPORT INFORMATION
  Report Type: Spontaneous
  Country: FR (occurrence: FR)
  Receive Date: 20240126
  Receipt Date: 20240126
  Transmission Date: 20240409
  Serious: Yes (Hospitalization, Other)
  Sender: FDA-Public Use
  Company Number: FR-009507513-2312FRA008360

PATIENT
  Age: 49 Year
  Sex: Female
  Weight: 79 kg

DRUGS (12)
  1. KEYTRUDA [Suspect]
     Active Substance: PEMBROLIZUMAB
     Indication: Triple negative breast cancer
     Dosage: 200 MILLIGRAM, Q3W
     Dates: start: 20230719, end: 20230719
  2. KEYTRUDA [Suspect]
     Active Substance: PEMBROLIZUMAB
     Dosage: 200 MILLIGRAM, Q3W
     Dates: start: 20230807, end: 20230807
  3. KEYTRUDA [Suspect]
     Active Substance: PEMBROLIZUMAB
     Dosage: 200 MILLIGRAM, Q3W
     Dates: start: 20230828, end: 20230828
  4. KEYTRUDA [Suspect]
     Active Substance: PEMBROLIZUMAB
     Dosage: 200 MILLIGRAM, Q3W
     Route: 042
     Dates: start: 20230918, end: 20230918
  5. TAXOL [Suspect]
     Active Substance: PACLITAXEL
     Indication: Triple negative breast cancer
     Dosage: 80 MILLIGRAM/KILOGRAM, QOW
     Route: 042
     Dates: start: 20230719, end: 20230911
  6. TAXOL [Suspect]
     Active Substance: PACLITAXEL
     Dosage: DECREASED AT 65/MG/KG
     Dates: start: 20230911, end: 20231002
  7. CARBOPLATIN [Suspect]
     Active Substance: CARBOPLATIN
     Indication: Triple negative breast cancer
     Dosage: 600 MILLIGRAM, QOW
     Route: 042
     Dates: start: 20230719, end: 20230814
  8. CARBOPLATIN [Suspect]
     Active Substance: CARBOPLATIN
     Dosage: DECREASED 75%
     Route: 042
     Dates: start: 20230814, end: 20231002
  9. FERINJECT [Suspect]
     Active Substance: FERRIC CARBOXYMALTOSE
     Indication: Anaemia
     Dosage: 500 MILLIGRAM, QD
     Route: 042
     Dates: start: 20230911, end: 20230911
  10. ACETAMINOPHEN [Concomitant]
     Active Substance: ACETAMINOPHEN
     Indication: Pain
     Dosage: 1 GRAM
  11. OLANZAPINE [Concomitant]
     Active Substance: OLANZAPINE
     Dosage: 5 MILLIGRAM, QD
  12. ANTIHISTAMINES NOS [Concomitant]
     Active Substance: ANTIHISTAMINES NOS
     Indication: Hypersensitivity
     Dosage: UNK

REACTIONS (9)
  - Lymphadenopathy [Recovered/Resolved]
  - Inappropriate schedule of product administration [Unknown]
  - Drug intolerance [Unknown]
  - Viral infection [Unknown]
  - Arthralgia [Unknown]
  - Dysphonia [Unknown]
  - Dyspnoea [Unknown]
  - Acute kidney injury [Unknown]
  - Asthenia [Recovered/Resolved]

NARRATIVE: CASE EVENT DATE: 20230807
